FAERS Safety Report 8099955-6 (Version None)
Quarter: 2012Q1

REPORT INFORMATION
  Report Type: 
  Country: None (occurrence: None)
  Receive Date: 20120129
  Receipt Date: 20111125
  Transmission Date: 20120608
  Serious: No
  Sender: FDA-Public Use
  Company Number: US-ABBOTT-11P-163-0878400-00

PATIENT
  Age: 36 Year
  Sex: Female

DRUGS (10)
  1. HUMIRA [Suspect]
     Indication: CROHN'S DISEASE
  2. IMURAN [Concomitant]
     Indication: CROHN'S DISEASE
     Dosage: DAILY
     Route: 048
  3. CALCIUM [Concomitant]
     Indication: BLOOD CALCIUM DECREASED
     Route: 048
     Dates: start: 20080101
  4. CLONAZEPAM [Concomitant]
     Indication: ANXIETY
     Dosage: 1-2 MG DAILY PRN
     Route: 048
     Dates: start: 20110901
  5. VITAMIN D [Concomitant]
     Indication: VITAMIN D DECREASED
     Route: 048
     Dates: start: 20080101
  6. VITAMIN B-12 [Concomitant]
     Indication: VITAMIN B12 DEFICIENCY
     Dosage: DAILY
     Route: 060
     Dates: start: 20100101
  7. HYDROCODONE BITARTRATE [Concomitant]
     Indication: PAIN
     Dosage: 10/325MG 1-2 TABLETS DAILY PRN
     Route: 048
     Dates: start: 20080101
  8. VITAMIN B-12 [Concomitant]
     Dosage: MONTHLY
     Route: 030
  9. VITAMIN B-12 [Concomitant]
     Dosage: MONTHLY
     Route: 030
     Dates: start: 20100101
  10. CLONAZEPAM [Concomitant]
     Indication: INSOMNIA

REACTIONS (3)
  - THROAT IRRITATION [None]
  - SINUS HEADACHE [None]
  - UPPER RESPIRATORY TRACT INFECTION [None]
